FAERS Safety Report 13269152 (Version 1)
Quarter: 2017Q1

REPORT INFORMATION
  Report Type: Report from Study
  Country: US (occurrence: US)
  Receive Date: 20170224
  Receipt Date: 20170224
  Transmission Date: 20170428
  Serious: Yes (Hospitalization, Other)
  Sender: FDA-Public Use
  Company Number: US-BEH-2017078323

PATIENT
  Age: 57 Year
  Sex: Male
  Weight: 88.44 kg

DRUGS (1)
  1. ZEMAIRA [Suspect]
     Active Substance: .ALPHA.1-PROTEINASE INHIBITOR HUMAN
     Indication: ALPHA-1 ANTI-TRYPSIN DEFICIENCY
     Dosage: UNK, QW
     Route: 042

REACTIONS (4)
  - Pneumonia [Recovering/Resolving]
  - Poor peripheral circulation [Unknown]
  - Respiration abnormal [Unknown]
  - Oedema peripheral [Unknown]

NARRATIVE: CASE EVENT DATE: 2017
